FAERS Safety Report 8184657-8 (Version None)
Quarter: 2012Q1

REPORT INFORMATION
  Report Type: 
  Country: None (occurrence: None)
  Receive Date: 20120210
  Receipt Date: 20110914
  Transmission Date: 20120608
  Serious: Yes (Other)
  Sender: FDA-Public Use
  Company Number: 2011BH024754

PATIENT

DRUGS (1)
  1. IFEX/MESNEX KIT [Suspect]
     Indication: PRODUCT USED FOR UNKNOWN INDICATION
     Dosage: ;UNK;UNK
     Dates: end: 20110101

REACTIONS (1)
  - ENCEPHALOPATHY [None]
